FAERS Safety Report 5076918-6 (Version None)
Quarter: 2006Q3

REPORT INFORMATION
  Report Type: 
  Country: None (occurrence: None)
  Receive Date: 20060810
  Receipt Date: 20060616
  Transmission Date: 20061208
  Serious: No
  Sender: FDA-Public Use
  Company Number: 2006GB01028

PATIENT
  Age: 20666 Day
  Sex: Male

DRUGS (6)
  1. SEROQUEL [Suspect]
     Route: 048
     Dates: start: 20060201, end: 20060601
  2. SEROQUEL [Suspect]
     Route: 048
  3. DIAZEPAM [Concomitant]
     Indication: ANXIETY
     Dosage: 5MG UP TO TID, PRN
     Route: 048
     Dates: start: 20041101
  4. LAMOTRIGINE [Concomitant]
     Indication: DEPRESSION
     Route: 048
     Dates: start: 20040401
  5. DEPAKOTE [Concomitant]
     Indication: AFFECTIVE DISORDER
     Route: 048
     Dates: start: 20040801
  6. LUSTRAL [Concomitant]
     Indication: DEPRESSION
     Route: 048
     Dates: start: 20041101

REACTIONS (1)
  - LEUKOPENIA [None]
